FAERS Safety Report 8033116-1 (Version None)
Quarter: 2012Q1

REPORT INFORMATION
  Report Type: 
  Country: None (occurrence: None)
  Receive Date: 20120110
  Receipt Date: 20120110
  Transmission Date: 20120608
  Serious: Yes (Hospitalization)
  Sender: FDA-Public Use
  Company Number: None

PATIENT
  Age: 38 Year
  Sex: Female
  Weight: 98.883 kg

DRUGS (1)
  1. EXCEDRIN (MIGRAINE) [Suspect]
     Indication: MIGRAINE
     Dosage: 2 GELTABS
     Route: 048
     Dates: start: 20111229, end: 20111229

REACTIONS (3)
  - DYSPNOEA [None]
  - COLD SWEAT [None]
  - HEART RATE INCREASED [None]
